FAERS Safety Report 10460930 (Version 1)
Quarter: 2014Q3

REPORT INFORMATION
  Report Type: Spontaneous
  Country: US (occurrence: None)
  Receive Date: 20140917
  Receipt Date: 20140917
  Transmission Date: 20150326
  Serious: Yes (Other)
  Sender: FDA-Public Use
  Company Number: None

PATIENT
  Age: 65 Year
  Sex: Male
  Weight: 79.38 kg

DRUGS (1)
  1. BYDUREON [Suspect]
     Active Substance: EXENATIDE
     Indication: DIABETES MELLITUS
     Dosage: 1 SHOT PER WEEK ?1 PER WEEK?GIVEN INTO/UNDER THE SKIN

REACTIONS (6)
  - Inflammation [None]
  - Varicose vein [None]
  - Oedema peripheral [None]
  - Pain in extremity [None]
  - Paraesthesia [None]
  - Hyperaesthesia [None]

NARRATIVE: CASE EVENT DATE: 20140512
